FAERS Safety Report 24344549 (Version 1)
Quarter: 2024Q3

REPORT INFORMATION
  Report Type: Spontaneous
  Country: AU (occurrence: AU)
  Receive Date: 20240920
  Receipt Date: 20240920
  Transmission Date: 20241017
  Serious: Yes (Hospitalization, Other)
  Sender: BIOVITRUM
  Company Number: AU-BIOVITRUM-2024-AU-011987

PATIENT
  Sex: Female

DRUGS (3)
  1. AVATROMBOPAG [Suspect]
     Active Substance: AVATROMBOPAG
     Indication: Immune thrombocytopenia
     Dosage: 20 MG /40 MG ALTERNATE DAILY
  2. AVATROMBOPAG [Suspect]
     Active Substance: AVATROMBOPAG
     Dosage: 20 MG PER DAY
     Dates: start: 20240708
  3. AVATROMBOPAG [Suspect]
     Active Substance: AVATROMBOPAG
     Dosage: TWICE WEEKLY

REACTIONS (3)
  - Pulmonary embolism [Unknown]
  - Mucosal haemorrhage [Unknown]
  - Platelet count decreased [Recovering/Resolving]

NARRATIVE: CASE EVENT DATE: 20240531
